FAERS Safety Report 8433622-1 (Version None)
Quarter: 2012Q2

REPORT INFORMATION
  Report Type: 
  Country: None (occurrence: None)
  Receive Date: 20120323
  Receipt Date: 20110711
  Transmission Date: 20120825
  Serious: Yes (Hospitalization)
  Sender: FDA-Public Use
  Company Number: 163-21880-11071488

PATIENT
  Age: 82 Year
  Sex: Female
  Weight: 53.5244 kg

DRUGS (9)
  1. AMLODIPINE [Concomitant]
  2. ASPIRIN [Concomitant]
  3. BENAZEPRIL HYDROCHLORIDE [Concomitant]
  4. REVLIMID [Suspect]
     Indication: MYELODYSPLASTIC SYNDROME
     Dosage: 5 MG, DAILY X 28 DAYS, PO
     Route: 048
     Dates: start: 20081022
  5. REVLIMID [Suspect]
     Indication: MYELODYSPLASTIC SYNDROME
     Dosage: 5 MG, DAILY X 28 DAYS, PO
     Route: 048
     Dates: start: 20090301
  6. CARVEDILOL [Concomitant]
  7. FLAGYL [Concomitant]
  8. LEVOTHYROXINE SODIUM [Concomitant]
  9. PLAVIX [Concomitant]

REACTIONS (3)
  - FALL [None]
  - RENAL IMPAIRMENT [None]
  - DEHYDRATION [None]
